FAERS Safety Report 19976849 (Version 1)
Quarter: 2021Q4

REPORT INFORMATION
  Report Type: Spontaneous
  Country: US (occurrence: US)
  Receive Date: 20211020
  Receipt Date: 20211020
  Transmission Date: 20220303
  Serious: No
  Sender: FDA-Public Use
  Company Number: US-ALLERGAN-2126683US

PATIENT
  Age: 41 Year
  Sex: Male
  Weight: 81.63 kg

DRUGS (1)
  1. LINZESS [Suspect]
     Active Substance: LINACLOTIDE
     Indication: Product used for unknown indication
     Dosage: UNK
     Dates: start: 2021

REACTIONS (1)
  - Spontaneous penile erection [Recovered/Resolved]

NARRATIVE: CASE EVENT DATE: 20210716
